FAERS Safety Report 8805091 (Version 1)
Quarter: 2012Q4

REPORT INFORMATION
  Report Type: 
  Country: US (occurrence: US)
  Receive Date: 20120924
  Receipt Date: 20120924
  Transmission Date: 20130627
  Serious: No
  Sender: FDA-Public Use
  Company Number: US-ALLERGAN-1211911US

PATIENT
  Age: 67 Year
  Sex: Male

DRUGS (6)
  1. LUMIGAN� 0.01% [Suspect]
     Indication: GLAUCOMA
     Dosage: 1 Gtt, qhs
     Route: 047
     Dates: start: 20120824, end: 20120824
  2. PREDNISOLONE ACETATE, 1.0% [Concomitant]
     Indication: BROKEN BLOOD VESSEL IN EYE
     Dosage: UNK
     Route: 047
     Dates: start: 201207
  3. ATROPINE [Concomitant]
     Indication: DRUG USE FOR UNKNOWN INDICATION
     Dosage: UNK
  4. COUMADIN                           /00014802/ [Concomitant]
     Indication: DRUG USE FOR UNKNOWN INDICATION
     Dosage: UNK
  5. DORZOLAMIDE [Concomitant]
     Indication: GLAUCOMA
     Dosage: 1 Gtt, UNK
     Route: 047
     Dates: start: 20120727
  6. BRIMONIDINE TARTRATE, 0.2% [Concomitant]
     Indication: GLAUCOMA
     Dosage: 1 Gtt, UNK
     Route: 047
     Dates: start: 20120809

REACTIONS (3)
  - Pyrexia [Recovered/Resolved]
  - Headache [Recovered/Resolved]
  - Eye pain [Recovering/Resolving]
